FAERS Safety Report 20172573 (Version 1)
Quarter: 2021Q4

REPORT INFORMATION
  Report Type: Other
  Country: CN (occurrence: None)
  Receive Date: 20211211
  Receipt Date: 20211211
  Transmission Date: 20220303
  Serious: Yes (Other)
  Sender: FDA-Public Use
  Company Number: CN-ROCHE-2971322

PATIENT

DRUGS (3)
  1. TOCILIZUMAB [Suspect]
     Active Substance: TOCILIZUMAB
     Indication: Still^s disease
     Dosage: TOCILIZUMAB WAS GIVEN AT A DOSAGE OF 8-12 MG/KG (12 MG/KG FOR BODY WEIGHT { 30 KG, 8 MG/KG FOR BODY
     Route: 042
  2. TOCILIZUMAB [Suspect]
     Active Substance: TOCILIZUMAB
     Dosage: AFTER INITIAL 12 WEEKS
     Route: 042
  3. TOCILIZUMAB [Suspect]
     Active Substance: TOCILIZUMAB
     Dosage: AFTER AN INITIAL 24 WEEKS OF TREATMENT.
     Route: 042

REACTIONS (9)
  - Pneumonia [Unknown]
  - Lung consolidation [Unknown]
  - Sepsis [Unknown]
  - Haemophagocytic lymphohistiocytosis [Recovered/Resolved]
  - Infusion related reaction [Recovered/Resolved]
  - Granulocytopenia [Unknown]
  - Streptococcal infection [Unknown]
  - Transaminases increased [Unknown]
  - Leukopenia [Unknown]
